FAERS Safety Report 6243706-4 (Version None)
Quarter: 2009Q2

REPORT INFORMATION
  Report Type: 
  Country: None (occurrence: None)
  Receive Date: 20090624
  Receipt Date: 20090615
  Transmission Date: 20091009
  Serious: Yes (Other)
  Sender: FDA-Public Use
  Company Number: US-MYLANLABS-2009S1008585

PATIENT
  Age: 72 Year
  Sex: Female
  Weight: 72.58 kg

DRUGS (19)
  1. FENTANYL TRANSDERMAL SYSTEM [Suspect]
     Indication: SCIATICA
     Dosage: CHANGED Q72H
     Route: 062
     Dates: start: 20090509, end: 20090511
  2. FENTANYL TRANSDERMAL SYSTEM [Suspect]
     Indication: PAIN IN EXTREMITY
     Dosage: CHANGED Q72H
     Route: 062
     Dates: start: 20090509, end: 20090511
  3. FENTANYL TRANSDERMAL SYSTEM [Suspect]
     Indication: BACK PAIN
     Dosage: CHANGED Q72H
     Route: 062
     Dates: start: 20090509, end: 20090511
  4. FENTANYL TRANSDERMAL SYSTEM [Suspect]
     Indication: NERVE COMPRESSION
     Dosage: CHANGED Q72H
     Route: 062
     Dates: start: 20090509, end: 20090511
  5. PREVACID [Concomitant]
     Indication: GASTROOESOPHAGEAL REFLUX DISEASE
     Route: 048
     Dates: start: 19790101
  6. THEOPHYLLINE [Concomitant]
     Indication: ASTHMA
     Route: 048
     Dates: start: 19890101
  7. ATENOLOL [Concomitant]
     Indication: HYPERTENSION
     Route: 048
     Dates: start: 19860101
  8. SPIRONOLACTONE [Concomitant]
     Indication: FLUID RETENTION
     Route: 048
     Dates: start: 20070101
  9. CARDIZEM [Concomitant]
     Indication: HYPERTENSION
     Route: 048
     Dates: start: 19860101
  10. POLYETHYLENE GLYCOL [Concomitant]
     Indication: LAXATIVE SUPPORTIVE CARE
     Route: 048
     Dates: start: 20070101
  11. ASPIRIN [Concomitant]
     Route: 048
     Dates: start: 19860101
  12. PULMICORT-100 [Concomitant]
     Indication: ASTHMA
     Route: 055
     Dates: start: 19940101
  13. ALBUTEROL [Concomitant]
     Indication: ASTHMA
     Route: 055
     Dates: start: 19940101
  14. XOPENEX [Concomitant]
     Indication: ASTHMA
     Route: 055
     Dates: start: 19940101
  15. PREDNISONE [Concomitant]
     Route: 048
  16. NITROGLYCERIN [Concomitant]
     Dates: start: 19860101
  17. TALWIN /00052101/ [Concomitant]
     Indication: BREAKTHROUGH PAIN
     Route: 048
     Dates: start: 19940101
  18. CALCIUM WITH VITAMIN D [Concomitant]
  19. FISH OIL [Concomitant]
     Route: 048

REACTIONS (9)
  - ANGINA PECTORIS [None]
  - ASTHENIA [None]
  - BLOOD PRESSURE INCREASED [None]
  - CHEST PAIN [None]
  - DYSPNOEA [None]
  - HEART RATE INCREASED [None]
  - HYPERHIDROSIS [None]
  - NAUSEA [None]
  - PRURITUS GENERALISED [None]
